FAERS Safety Report 4515526-X (Version None)
Quarter: 2004Q4

REPORT INFORMATION
  Report Type: 
  Country: None (occurrence: None)
  Receive Date: 20041201
  Receipt Date: 20041122
  Transmission Date: 20050328
  Serious: Yes (Life-Threatening)
  Sender: FDA-Public Use
  Company Number: GB-ABBOTT-04P-167-0281513-00

PATIENT
  Age: 66 Year
  Sex: Male
  Weight: 77 kg

DRUGS (8)
  1. CLARITHROMYCIN [Suspect]
     Indication: INTERNATIONAL NORMALISED RATIO
     Dates: end: 20040101
  2. SIMVASTATIN [Suspect]
     Indication: INTERNATIONAL NORMALISED RATIO
  3. WARFARIN [Suspect]
     Indication: MITRAL VALVE REPAIR
     Route: 048
     Dates: end: 20041106
  4. ASPIRIN [Suspect]
     Indication: MYOCARDIAL ISCHAEMIA
     Route: 048
     Dates: end: 20041108
  5. SENNA [Concomitant]
     Indication: CONSTIPATION
     Route: 048
     Dates: end: 20041108
  6. DIGOXIN [Concomitant]
     Indication: DRUG USE FOR UNKNOWN INDICATION
     Route: 048
  7. FUROSEMIDE [Concomitant]
     Indication: DRUG USE FOR UNKNOWN INDICATION
     Route: 048
  8. CLAVULIN [Concomitant]
     Indication: LOWER RESPIRATORY TRACT INFECTION
     Route: 048
     Dates: start: 20041105

REACTIONS (1)
  - GASTROINTESTINAL HAEMORRHAGE [None]
